FAERS Safety Report 5839261-0 (Version None)
Quarter: 2008Q3

REPORT INFORMATION
  Report Type: 
  Country: None (occurrence: None)
  Receive Date: 20080808
  Receipt Date: 20080806
  Transmission Date: 20090109
  Serious: Yes (Disabling, Other)
  Sender: FDA-Public Use
  Company Number: DK-PFIZER INC-2008061869

PATIENT
  Sex: Male

DRUGS (5)
  1. CELEBRA [Suspect]
     Indication: OSTEOARTHRITIS
     Dosage: DAILY DOSE:200MG
  2. ACINIL [Concomitant]
     Indication: GASTRITIS
     Route: 048
  3. ZOPICLONE [Concomitant]
     Indication: INSOMNIA
  4. CHONDROITIN/GLUCOSAMINE [Concomitant]
     Indication: OSTEOARTHRITIS
     Dosage: TEXT:14MG/18/G
  5. METHSUXIMIDE [Concomitant]
     Indication: OSTEOARTHRITIS

REACTIONS (2)
  - MEMORY IMPAIRMENT [None]
  - TRANSIENT ISCHAEMIC ATTACK [None]
